FAERS Safety Report 14338362 (Version 3)
Quarter: 2018Q2

REPORT INFORMATION
  Report Type: Report from Study
  Country: JP (occurrence: JP)
  Receive Date: 20171229
  Receipt Date: 20180605
  Transmission Date: 20180711
  Serious: Yes (Life-Threatening, Hospitalization, Other)
  Sender: FDA-Public Use
  Company Number: JP-CELGENEUS-JPN-20170504972

PATIENT
  Age: 79 Year
  Sex: Female

DRUGS (47)
  1. COLCHICINE. [Concomitant]
     Active Substance: COLCHICINE
     Indication: PRODUCT USED FOR UNKNOWN INDICATION
     Dosage: UNKNOWN
     Route: 048
  2. METOCLOPRAMIDE. [Concomitant]
     Active Substance: METOCLOPRAMIDE
     Indication: ADVERSE EVENT
     Dosage: UNKNOWN
     Route: 041
  3. ASTOMIN [Concomitant]
     Active Substance: DIMEMORFAN
     Indication: ADVERSE EVENT
     Dosage: UNKNOWN
     Route: 048
  4. SYMBICORT [Concomitant]
     Active Substance: BUDESONIDE\FORMOTEROL FUMARATE DIHYDRATE
     Indication: ADVERSE EVENT
     Dosage: UNKNOWN
     Route: 055
  5. ACELIO [Concomitant]
     Active Substance: ACETAMINOPHEN
     Indication: ADVERSE EVENT
     Dosage: UNKNOWN
     Route: 041
  6. REVLIMID [Suspect]
     Active Substance: LENALIDOMIDE
     Dosage: 5 MILLIGRAM
     Route: 048
     Dates: start: 20170627, end: 20170717
  7. REVLIMID [Suspect]
     Active Substance: LENALIDOMIDE
     Dosage: 5 MILLIGRAM
     Route: 048
     Dates: start: 20170727, end: 20170803
  8. CELECOX [Suspect]
     Active Substance: CELECOXIB
     Indication: PRODUCT USED FOR UNKNOWN INDICATION
     Dosage: UNKNOWN
     Route: 048
  9. AMLODIPINE [Concomitant]
     Active Substance: AMLODIPINE BESYLATE
     Indication: PRODUCT USED FOR UNKNOWN INDICATION
     Dosage: UNKNOWN
     Route: 048
  10. PREDONINE [Concomitant]
     Active Substance: PREDNISOLONE
     Indication: ADVERSE EVENT
     Dosage: UNKNOWN
     Route: 041
  11. NORADRENALINE [Concomitant]
     Active Substance: NOREPINEPHRINE
     Indication: ADVERSE EVENT
     Dosage: UNKNOWN
     Route: 041
  12. ARGAMATE [Concomitant]
     Active Substance: CALCIUM POLYSTYRENE SULFONATE
     Indication: ADVERSE EVENT
     Dosage: UNKNOWN
     Route: 048
  13. MEPTIN [Concomitant]
     Active Substance: PROCATEROL HYDROCHLORIDE
     Indication: ADVERSE EVENT
     Dosage: UNKNOWN
     Route: 055
  14. MIDAZOLAM [Concomitant]
     Active Substance: MIDAZOLAM HYDROCHLORIDE
     Indication: ADVERSE EVENT
     Dosage: UNKNOWN
     Route: 041
  15. LENADEX [Suspect]
     Active Substance: DEXAMETHASONE ACETATE
     Dosage: 4 MILLIGRAM
     Route: 048
     Dates: start: 20170727, end: 20170803
  16. VALTREX [Concomitant]
     Active Substance: VALACYCLOVIR HYDROCHLORIDE
     Indication: ADVERSE EVENT
     Dosage: UNKNOWN
     Route: 048
  17. LUNESTA [Concomitant]
     Active Substance: ESZOPICLONE
     Indication: ADVERSE EVENT
     Dosage: UNKNOWN
     Route: 048
  18. CALONAL [Concomitant]
     Active Substance: ACETAMINOPHEN
     Indication: PRODUCT USED FOR UNKNOWN INDICATION
     Dosage: UNKNOWN
     Route: 048
  19. MOSAPRIDE CITRATE [Concomitant]
     Active Substance: MOSAPRIDE CITRATE
     Indication: ADVERSE EVENT
     Dosage: UNKNOWN
     Route: 048
  20. CATABON [Concomitant]
     Active Substance: DOPAMINE HYDROCHLORIDE
     Indication: ADVERSE EVENT
     Dosage: UNKNOWN
     Route: 041
  21. HYDROCORTONE [Concomitant]
     Active Substance: HYDROCORTISONE
     Indication: ADVERSE EVENT
     Dosage: UNKNOWN
     Route: 041
  22. CELECOX [Suspect]
     Active Substance: CELECOXIB
     Dosage: INCREASED DOSE
     Route: 048
  23. ARTIST [Concomitant]
     Active Substance: CARVEDILOL
     Indication: PRODUCT USED FOR UNKNOWN INDICATION
     Dosage: UNKNOWN
     Route: 048
  24. ORGARAN [Concomitant]
     Active Substance: DANAPAROID SODIUM
     Indication: ADVERSE EVENT
     Dosage: UNKNOWN
     Route: 041
  25. CARBAZOCHROME SODIUM SULFONATE [Concomitant]
     Active Substance: CARBAZOCHROME SODIUM SULFONATE
     Indication: ADVERSE EVENT
     Dosage: UNKNOWN
     Route: 041
  26. MEYLON [Concomitant]
     Active Substance: SODIUM BICARBONATE
     Indication: ADVERSE EVENT
     Dosage: UNKNOWN
     Route: 041
  27. FEBURIC [Concomitant]
     Active Substance: FEBUXOSTAT
     Indication: PRODUCT USED FOR UNKNOWN INDICATION
     Dosage: UNKNOWN
     Route: 048
  28. FENTOS [Concomitant]
     Active Substance: FENTANYL
     Indication: PRODUCT USED FOR UNKNOWN INDICATION
     Dosage: UNKNOWN
     Route: 062
  29. HUMALOG [Concomitant]
     Active Substance: INSULIN LISPRO
     Indication: PRODUCT USED FOR UNKNOWN INDICATION
     Dosage: UNKNOWN
     Route: 041
  30. HOKUNALIN [Concomitant]
     Active Substance: TULOBUTEROL
     Indication: ADVERSE EVENT
     Dosage: UNKNOWN
     Route: 062
  31. PANTHENOL [Concomitant]
     Active Substance: PANTHENOL
     Indication: PROPHYLAXIS
     Dosage: UNKNOWN
     Route: 041
  32. LINTON [Concomitant]
     Active Substance: HALOPERIDOL
     Indication: ADVERSE EVENT
     Dosage: UNKNOWN
     Route: 041
  33. FUROSEMIDE. [Concomitant]
     Active Substance: FUROSEMIDE
     Indication: ADVERSE EVENT
     Dosage: UNKNOWN
     Route: 041
  34. LENADEX [Suspect]
     Active Substance: DEXAMETHASONE ACETATE
     Dosage: 4 MILLIGRAM
     Route: 048
     Dates: start: 20170627, end: 20170711
  35. SIMVASTATIN. [Concomitant]
     Active Substance: SIMVASTATIN
     Indication: PRODUCT USED FOR UNKNOWN INDICATION
     Dosage: UNKNOWN
     Route: 048
  36. MERISLON [Concomitant]
     Active Substance: BETAHISTINE MESILATE
     Indication: ADVERSE EVENT
     Dosage: UNKNOWN
     Route: 048
  37. DIAZEPAM. [Concomitant]
     Active Substance: DIAZEPAM
     Indication: ADVERSE EVENT
     Dosage: UNKNOWN
     Route: 041
  38. REVLIMID [Suspect]
     Active Substance: LENALIDOMIDE
     Indication: PLASMA CELL MYELOMA
     Dosage: 15 MILLIGRAM
     Route: 048
     Dates: start: 20170504, end: 20170510
  39. LENADEX [Suspect]
     Active Substance: DEXAMETHASONE ACETATE
     Indication: PLASMA CELL MYELOMA
     Dosage: 10 MILLIGRAM
     Route: 048
     Dates: start: 20170504, end: 20170504
  40. FLUCONAZOLE. [Concomitant]
     Active Substance: FLUCONAZOLE
     Indication: PROPHYLAXIS
     Dosage: 100 MILLIGRAM
     Route: 048
     Dates: start: 20170430, end: 20170907
  41. FLUCONAZOLE. [Concomitant]
     Active Substance: FLUCONAZOLE
     Indication: ADVERSE EVENT
  42. ETIZOLAM [Concomitant]
     Active Substance: ETIZOLAM
     Indication: ADVERSE EVENT
     Dosage: UNKNOWN
     Route: 048
  43. BROMHEXINE HYDROCHLORIDE [Concomitant]
     Active Substance: BROMHEXINE HYDROCHLORIDE
     Indication: ADVERSE EVENT
     Dosage: UNKNOWN
     Route: 055
  44. CARBOCYSTEINE [Concomitant]
     Active Substance: CARBOCYSTEINE
     Indication: ADVERSE EVENT
     Dosage: UNKNOWN
     Route: 048
  45. NEUART [Concomitant]
     Active Substance: ANTITHROMBIN III HUMAN
     Indication: ADVERSE EVENT
     Dosage: UNKNOWN
     Route: 041
  46. MAGMITT [Concomitant]
     Active Substance: MAGNESIUM OXIDE
     Indication: PRODUCT USED FOR UNKNOWN INDICATION
     Dosage: UNKNOWN
     Route: 048
  47. OXYNORM [Concomitant]
     Active Substance: OXYCODONE HYDROCHLORIDE
     Indication: PRODUCT USED FOR UNKNOWN INDICATION
     Dosage: UNKNOWN
     Route: 048

REACTIONS (16)
  - Cytomegalovirus infection [Recovering/Resolving]
  - Cardiac failure acute [Recovering/Resolving]
  - Nausea [Recovering/Resolving]
  - Insomnia [Recovering/Resolving]
  - Deep vein thrombosis [Recovering/Resolving]
  - Anaemia [Recovering/Resolving]
  - Hyperkalaemia [Recovering/Resolving]
  - Vomiting [Recovering/Resolving]
  - Upper respiratory tract inflammation [Recovering/Resolving]
  - Pneumonia [Recovering/Resolving]
  - Melaena [Recovered/Resolved]
  - Oral herpes [Recovering/Resolving]
  - Pneumonia aspiration [Recovering/Resolving]
  - Cystitis [Recovered/Resolved]
  - Dizziness [Recovering/Resolving]
  - Septic shock [Recovering/Resolving]

NARRATIVE: CASE EVENT DATE: 20170504
